FAERS Safety Report 5293205-1 (Version None)
Quarter: 2007Q2

REPORT INFORMATION
  Report Type: 
  Country: None (occurrence: None)
  Receive Date: 20070411
  Receipt Date: 20070328
  Transmission Date: 20071010
  Serious: Yes (Hospitalization)
  Sender: FDA-Public Use
  Company Number: US-AMGEN-US217263

PATIENT
  Sex: Male

DRUGS (5)
  1. PANITUMUMAB [Suspect]
     Indication: COLORECTAL CANCER
     Route: 042
  2. LEUCOVORIN CALCIUM [Suspect]
     Route: 065
  3. FLUOROURACIL [Suspect]
     Route: 065
  4. IRINOTECAN HCL [Suspect]
     Route: 065
  5. NEULASTA [Concomitant]
     Route: 065

REACTIONS (3)
  - DEHYDRATION [None]
  - MUCOSAL INFLAMMATION [None]
  - PANCYTOPENIA [None]
